FAERS Safety Report 8459772-1 (Version None)
Quarter: 2012Q2

REPORT INFORMATION
  Report Type: 
  Country: None (occurrence: None)
  Receive Date: 20120622
  Receipt Date: 20120619
  Transmission Date: 20120825
  Serious: Yes (Death)
  Sender: FDA-Public Use
  Company Number: FR-MERCK-1201USA03373

PATIENT
  Age: 65 Year
  Sex: Male
  Weight: 58 kg

DRUGS (8)
  1. TARGRETIN [Suspect]
     Indication: MYCOSIS FUNGOIDES
     Route: 065
     Dates: start: 20091101, end: 20111205
  2. EMEND [Suspect]
     Indication: VOMITING
     Route: 048
     Dates: start: 20110901
  3. NUTRITIONAL SUPPLEMENTS [Concomitant]
     Route: 065
  4. LEVOTHYROXINE SODIUM [Concomitant]
     Route: 065
  5. XERIAL 50 [Concomitant]
     Route: 065
  6. ROFERON-A [Suspect]
     Indication: MYCOSIS FUNGOIDES
     Dosage: MIU
     Route: 065
     Dates: start: 20101101
  7. AMITRIPTYLINE HYDROCHLORIDE [Concomitant]
     Route: 065
  8. LEXOMIL [Concomitant]
     Dosage: 3 INTAKES
     Route: 065

REACTIONS (14)
  - PSYCHOMOTOR RETARDATION [None]
  - HYPERCALCAEMIA [None]
  - VOMITING [None]
  - GENERAL PHYSICAL HEALTH DETERIORATION [None]
  - DISORIENTATION [None]
  - RENAL FAILURE ACUTE [None]
  - FLATULENCE [None]
  - DEHYDRATION [None]
  - BLOOD CHLORIDE INCREASED [None]
  - PROTEIN TOTAL INCREASED [None]
  - HYPERNATRAEMIA [None]
  - CACHEXIA [None]
  - HAEMOCONCENTRATION [None]
  - HAEMOGLOBIN INCREASED [None]
